FAERS Safety Report 13512643 (Version 1)
Quarter: 2017Q2

REPORT INFORMATION
  Report Type: Report from Study
  Country: None (occurrence: US)
  Receive Date: 20170504
  Receipt Date: 20170504
  Transmission Date: 20170830
  Serious: Yes (Hospitalization, Other)
  Sender: FDA-Public Use
  Company Number: US-ABBVIE-17K-163-1956859-00

PATIENT
  Sex: Female

DRUGS (1)
  1. HUMIRA [Suspect]
     Active Substance: ADALIMUMAB
     Indication: CROHN^S DISEASE
     Route: 058
     Dates: end: 201607

REACTIONS (4)
  - Oophoritis [Unknown]
  - Ovarian abscess [Unknown]
  - Crohn^s disease [Unknown]
  - Hernia [Unknown]

NARRATIVE: CASE EVENT DATE: 2016
